FAERS Safety Report 12945958 (Version 2)
Quarter: 2016Q4

REPORT INFORMATION
  Report Type: Spontaneous
  Country: BR (occurrence: BR)
  Receive Date: 20161116
  Receipt Date: 20161207
  Transmission Date: 20170207
  Serious: Yes (Disabling, Other)
  Sender: FDA-Public Use
  Company Number: BR-ASTRAZENECA-2016SF19524

PATIENT
  Age: 61 Year
  Sex: Male

DRUGS (8)
  1. OMEPRAZOLE. [Concomitant]
     Active Substance: OMEPRAZOLE
     Indication: GASTRIC DISORDER
     Dosage: PRATI DONADUZZI MANUFACTURER, DAILY
  2. ASPIRIN PREVENT [Concomitant]
     Active Substance: ASPIRIN
     Dates: start: 2002
  3. AMLODIPINE [Concomitant]
     Active Substance: AMLODIPINE BESYLATE
     Dates: start: 2002
  4. ATENOLOL. [Concomitant]
     Active Substance: ATENOLOL
     Indication: HYPERTENSION
     Dosage: EMS MANUFACTURER, TWO TIMES A DAY
  5. MAREVAN [Concomitant]
     Active Substance: WARFARIN SODIUM
     Dosage: DAILY
     Dates: start: 2002
  6. VASOGARD [Concomitant]
     Active Substance: CILOSTAZOL
     Indication: PERIPHERAL ARTERY STENOSIS
     Dates: start: 2016
  7. ATACAND [Suspect]
     Active Substance: CANDESARTAN CILEXETIL
     Indication: MYOCARDIAL INFARCTION
     Route: 048
     Dates: start: 2006
  8. LIPITOR [Concomitant]
     Active Substance: ATORVASTATIN CALCIUM
     Indication: PROPHYLAXIS
     Dosage: DAILY

REACTIONS (3)
  - Gout [Recovering/Resolving]
  - Fatigue [Not Recovered/Not Resolved]
  - Peripheral artery stenosis [Recovering/Resolving]

NARRATIVE: CASE EVENT DATE: 2006
